FAERS Safety Report 13641498 (Version 2)
Quarter: 2018Q3

REPORT INFORMATION
  Report Type: Spontaneous
  Country: FR (occurrence: FR)
  Receive Date: 20170612
  Receipt Date: 20180915
  Transmission Date: 20181010
  Serious: Yes (Other)
  Sender: FDA-Public Use
  Company Number: FR-AUROBINDO-AUR-APL-2017-35276

PATIENT
  Age: 55 Year
  Sex: Male

DRUGS (4)
  1. BROMAZEPAM [Concomitant]
     Active Substance: BROMAZEPAM
     Indication: DEPRESSION
  2. THIOCOLCHICOSIDE [Suspect]
     Active Substance: THIOCOLCHICOSIDE
     Indication: NECK PAIN
     Dosage: UNK
     Route: 065
     Dates: start: 201604
  3. ESCITALOPRAM [Concomitant]
     Active Substance: ESCITALOPRAM OXALATE
     Indication: DEPRESSION
  4. IBUPROFEN. [Suspect]
     Active Substance: IBUPROFEN
     Indication: NECK PAIN
     Dosage: UNK
     Route: 065
     Dates: start: 201604

REACTIONS (8)
  - Tachycardia [Recovered/Resolved]
  - Hypertensive crisis [Recovered/Resolved]
  - Malaise [Recovered/Resolved]
  - Hyperhidrosis [Recovered/Resolved]
  - Panic attack [Recovered/Resolved]
  - Tremor [Recovered/Resolved]
  - Insomnia [Recovered/Resolved]
  - Agitation [Recovered/Resolved]

NARRATIVE: CASE EVENT DATE: 201604
